FAERS Safety Report 14600040 (Version 1)
Quarter: 2018Q1

REPORT INFORMATION
  Report Type: Spontaneous
  Country: FR (occurrence: FR)
  Receive Date: 20180305
  Receipt Date: 20180305
  Transmission Date: 20180509
  Serious: Yes (Other)
  Sender: FDA-Public Use
  Company Number: FR-PFIZER INC-2018086433

PATIENT
  Age: 49 Year
  Sex: Female

DRUGS (2)
  1. BETAHISTINE SANDOZ [Suspect]
     Active Substance: BETAHISTINE HYDROCHLORIDE
     Dosage: 1 DF, 2X/DAY (IN THE MORNING AND IN THE EVENING)
     Dates: start: 20171227
  2. DALACINE [Suspect]
     Active Substance: CLINDAMYCIN HYDROCHLORIDE
     Dosage: 2 DF, 2X/DAY (IN THE MORNING AND IN THE EVENING)
     Dates: start: 20180115

REACTIONS (3)
  - Flatulence [Not Recovered/Not Resolved]
  - Abdominal distension [Not Recovered/Not Resolved]
  - Diarrhoea [Not Recovered/Not Resolved]

NARRATIVE: CASE EVENT DATE: 20180116
